FAERS Safety Report 21001628 (Version 3)
Quarter: 2022Q3

REPORT INFORMATION
  Report Type: Report from Study
  Country: US (occurrence: US)
  Receive Date: 20220624
  Receipt Date: 20220715
  Transmission Date: 20221027
  Serious: Yes (Hospitalization)
  Sender: FDA-Public Use
  Company Number: US-ALNYLAM PHARMACEUTICALS, INC.-ALN-2022-002160

PATIENT

DRUGS (1)
  1. ONPATTRO [Suspect]
     Active Substance: PATISIRAN SODIUM
     Indication: Hereditary neuropathic amyloidosis
     Dosage: 19.7 MILLIGRAM, Q3W
     Route: 042
     Dates: start: 20220426

REACTIONS (6)
  - Infusion site extravasation [Recovering/Resolving]
  - Cellulitis [Recovering/Resolving]
  - Infusion site swelling [Recovering/Resolving]
  - Infusion site erythema [Recovering/Resolving]
  - Pain [Recovering/Resolving]
  - Product dose omission issue [Unknown]

NARRATIVE: CASE EVENT DATE: 20220607
